FAERS Safety Report 15000257 (Version 1)
Quarter: 2018Q2

REPORT INFORMATION
  Report Type: Report from Study
  Country: IT (occurrence: IT)
  Receive Date: 20180612
  Receipt Date: 20180612
  Transmission Date: 20180711
  Serious: Yes (Hospitalization, Other)
  Sender: FDA-Public Use
  Company Number: IT-GLAXOSMITHKLINE-IT2018099923

PATIENT
  Age: 2 Year
  Sex: Female
  Weight: 13 kg

DRUGS (1)
  1. RANITIDINE HYDROCHLORIDE. [Suspect]
     Active Substance: RANITIDINE HYDROCHLORIDE
     Indication: PRODUCT USED FOR UNKNOWN INDICATION
     Dosage: 46 MG, QID
     Route: 048
     Dates: start: 20180520, end: 20180520

REACTIONS (3)
  - Melaena [Recovered/Resolved]
  - Depressed level of consciousness [Recovered/Resolved]
  - Medication error [Recovered/Resolved]

NARRATIVE: CASE EVENT DATE: 20180520
